FAERS Safety Report 22517517 (Version 1)
Quarter: 2023Q2

REPORT INFORMATION
  Report Type: Spontaneous
  Country: GB (occurrence: GB)
  Receive Date: 20230604
  Receipt Date: 20230604
  Transmission Date: 20230722
  Serious: Yes (Other)
  Sender: FDA-Public Use
  Company Number: GB-RELONP-2023SCRC047339

PATIENT
  Sex: Female

DRUGS (1)
  1. FLUOXETINE [Suspect]
     Active Substance: FLUOXETINE HYDROCHLORIDE
     Indication: Product used for unknown indication
     Dosage: 20 MILLIGRAM
     Route: 048

REACTIONS (7)
  - Foreign body in throat [Unknown]
  - Throat irritation [Not Recovered/Not Resolved]
  - Discomfort [Unknown]
  - Chest discomfort [Unknown]
  - Sensation of foreign body [Unknown]
  - Dyspepsia [Unknown]
  - Nausea [Unknown]
